FAERS Safety Report 4641760-4 (Version None)
Quarter: 2005Q2

REPORT INFORMATION
  Report Type: 
  Country: None (occurrence: None)
  Receive Date: 20050421
  Receipt Date: 20050407
  Transmission Date: 20051028
  Serious: Yes (Other)
  Sender: FDA-Public Use
  Company Number: 2005056882

PATIENT
  Age: 65 Year
  Sex: Female
  Weight: 88.4514 kg

DRUGS (9)
  1. NEURONTIN [Suspect]
     Indication: NEUROPATHIC PAIN
     Dosage: 300 MG (300 MG, 1 IN 1 D), ORAL
     Route: 048
  2. MORPHINE [Concomitant]
  3. MORPHINE SULFATE [Concomitant]
  4. PRINZIDE [Concomitant]
  5. METHYLPHENIDATE HCL [Concomitant]
  6. METFORMIN HYDROCHLROIDE (METFORMIN HYDROCHLORIDE) [Concomitant]
  7. LEVOTHYROXINE SODIUM [Concomitant]
  8. ESCITALOPRA (ESCITALOPRAM) [Concomitant]
  9. ESTROGNES C ONJUGATED (ESTROGNES CONJUGATED) [Concomitant]

REACTIONS (7)
  - BLOOD PRESSURE INCREASED [None]
  - CHONDROPATHY [None]
  - DIABETES MELLITUS [None]
  - DRUG INEFFECTIVE [None]
  - NEUROPATHIC PAIN [None]
  - POLYTRAUMATISM [None]
  - ROAD TRAFFIC ACCIDENT [None]
